FAERS Safety Report 21298886 (Version 1)
Quarter: 2022Q3

REPORT INFORMATION
  Report Type: Spontaneous
  Country: GU (occurrence: None)
  Receive Date: 20220904
  Receipt Date: 20220904
  Transmission Date: 20221027
  Serious: Yes (Life-Threatening, Hospitalization, Other)
  Sender: FDA-Public Use
  Company Number: None

PATIENT
  Sex: Male

DRUGS (2)
  1. UPTRAVI [Suspect]
     Active Substance: SELEXIPAG
     Indication: Pulmonary arterial hypertension
     Dosage: FREQUENCY : TWICE A DAY;?
     Route: 048
  2. Amlodipine 10mg tablet [Concomitant]

REACTIONS (3)
  - Oedema peripheral [None]
  - Acute hepatic failure [None]
  - Ascites [None]

NARRATIVE: CASE EVENT DATE: 20220902
